FAERS Safety Report 4603386-8 (Version None)
Quarter: 2005Q1

REPORT INFORMATION
  Report Type: 
  Country: None (occurrence: None)
  Receive Date: 20050308
  Receipt Date: 20050304
  Transmission Date: 20050727
  Serious: Yes (Death)
  Sender: FDA-Public Use
  Company Number: 2005-125840-NL

PATIENT

DRUGS (1)
  1. MIRTAZAPINE [Suspect]
     Dosage: 128 DF ONCE
     Route: 048

REACTIONS (1)
  - COMPLETED SUICIDE [None]
